FAERS Safety Report 5066892-0 (Version None)
Quarter: 2006Q3

REPORT INFORMATION
  Report Type: 
  Country: None (occurrence: None)
  Receive Date: 20060726
  Receipt Date: 20060712
  Transmission Date: 20061208
  Serious: Yes (Hospitalization)
  Sender: FDA-Public Use
  Company Number: SP00812

PATIENT
  Age: 53 Year
  Sex: Female
  Weight: 55.7924 kg

DRUGS (3)
  1. VISICOL [Suspect]
     Indication: COLONOSCOPY
     Dosage: 4 TABS/Q15MINX7 (TOTAL 28), ORAL
     Route: 048
     Dates: start: 20060309, end: 20060309
  2. CENESTIN [Concomitant]
  3. TOFRANIL [Concomitant]

REACTIONS (4)
  - HEADACHE [None]
  - PAIN [None]
  - PHARYNGEAL OEDEMA [None]
  - SPEECH DISORDER [None]
